FAERS Safety Report 4804764-4 (Version None)
Quarter: 2005Q4

REPORT INFORMATION
  Report Type: 
  Country: None (occurrence: None)
  Receive Date: 20051017
  Receipt Date: 20050809
  Transmission Date: 20060501
  Serious: Yes (Other)
  Sender: FDA-Public Use
  Company Number: 530#5#2005-00019

PATIENT
  Age: 72 Year
  Sex: Female

DRUGS (7)
  1. PROSTAVASIN [Suspect]
     Indication: PERIPHERAL ISCHAEMIA
     Dosage: 1.2 X 40 MCG PER DAY INTRAVENOUS DRIP
     Route: 041
     Dates: start: 20050802, end: 20050809
  2. BLINDED-DRUG (ALPROSTADIL PAOD) ) [Suspect]
  3. TRAMADOL HCL [Concomitant]
  4. ISOSORBIDE MONONITRATE [Concomitant]
     Indication: ANGINA PECTORIS
     Dosage: 2 X 50MG PER DAY
     Route: 048
  5. ASPIRIN [Concomitant]
     Indication: CARDIAC DISORDER
  6. ENALAPRIL MALEATE [Concomitant]
     Dosage: .5MG
  7. INSULIN HUMAN [Concomitant]
     Indication: DIABETES MELLITUS

REACTIONS (6)
  - AORTIC BRUIT [None]
  - ASTHENIA [None]
  - BLOOD PRESSURE INCREASED [None]
  - FALL [None]
  - ISCHAEMIC STROKE [None]
  - PYREXIA [None]
